FAERS Safety Report 7834434-X (Version None)
Quarter: 2011Q4

REPORT INFORMATION
  Report Type: 
  Country: None (occurrence: None)
  Receive Date: 20111024
  Receipt Date: 20111018
  Transmission Date: 20120403
  Serious: Yes (Life-Threatening, Disabling, Other)
  Sender: FDA-Public Use
  Company Number: GB-ELI_LILLY_AND_COMPANY-GB201110004292

PATIENT
  Age: 54 Year
  Sex: Female

DRUGS (5)
  1. ATORVASTATIN [Concomitant]
  2. BENDROFLUAZIDE [Concomitant]
  3. INSULIN [Concomitant]
  4. METFORMIN HCL [Concomitant]
  5. BYETTA [Suspect]
     Indication: DIABETES MELLITUS
     Dosage: UNK
     Route: 058
     Dates: start: 20100301, end: 20110501

REACTIONS (2)
  - HEPATIC NEOPLASM MALIGNANT [None]
  - OFF LABEL USE [None]
